FAERS Safety Report 12474761 (Version 1)
Quarter: 2016Q2

REPORT INFORMATION
  Report Type: Spontaneous
  Country: US (occurrence: None)
  Receive Date: 20160616
  Receipt Date: 20160616
  Transmission Date: 20160815
  Serious: Yes (Hospitalization)
  Sender: FDA-Public Use
  Company Number: None

PATIENT
  Age: 87 Year
  Sex: Female
  Weight: 59 kg

DRUGS (1)
  1. RUXOLITINIB INCYTE [Suspect]
     Active Substance: RUXOLITINIB
     Indication: CHRONIC LEUKAEMIA
     Route: 048
     Dates: start: 20160205

REACTIONS (1)
  - Pneumonia [None]

NARRATIVE: CASE EVENT DATE: 20160610
